FAERS Safety Report 19984400 (Version 1)
Quarter: 2021Q4

REPORT INFORMATION
  Report Type: Spontaneous
  Country: IT (occurrence: IT)
  Receive Date: 20211022
  Receipt Date: 20211022
  Transmission Date: 20220303
  Serious: Yes (Hospitalization)
  Sender: FDA-Public Use
  Company Number: IT-MYLANLABS-2021M1073164

PATIENT
  Age: 66 Year
  Sex: Male

DRUGS (10)
  1. CIPROFLOXACIN [Suspect]
     Active Substance: CIPROFLOXACIN
     Indication: Osteomyelitis
     Dosage: 400 MILLIGRAM, TID, THRICE DAILY
     Route: 065
  2. CIPROFLOXACIN [Suspect]
     Active Substance: CIPROFLOXACIN
     Indication: Pseudomonas infection
  3. CEFTOLOZANE SULFATE\TAZOBACTAM SODIUM [Suspect]
     Active Substance: CEFTOLOZANE SULFATE\TAZOBACTAM SODIUM
     Indication: Osteomyelitis
     Dosage: 3 GRAM, TID, THREE TIMES DAILY
     Route: 065
  4. CEFTOLOZANE SULFATE\TAZOBACTAM SODIUM [Suspect]
     Active Substance: CEFTOLOZANE SULFATE\TAZOBACTAM SODIUM
     Indication: Pseudomonas infection
  5. AMIKACIN [Suspect]
     Active Substance: AMIKACIN
     Indication: Osteomyelitis
     Dosage: 15 MILLIGRAM/KILOGRAM, QD
     Route: 065
  6. AMIKACIN [Suspect]
     Active Substance: AMIKACIN
     Indication: Pseudomonas infection
  7. AVIBACTAM SODIUM\CEFTAZIDIME [Concomitant]
     Active Substance: AVIBACTAM SODIUM\CEFTAZIDIME
     Indication: Osteomyelitis
     Dosage: 2.5 GRAM, Q4D, 4 TIMES DAILY
     Route: 042
  8. AVIBACTAM SODIUM\CEFTAZIDIME [Concomitant]
     Active Substance: AVIBACTAM SODIUM\CEFTAZIDIME
     Indication: Pseudomonas infection
  9. AZTREONAM [Concomitant]
     Active Substance: AZTREONAM
     Indication: Osteomyelitis
     Dosage: 2 GRAM, Q4D, FOUR TIMES DAILY FOR 6 WEEKS
     Route: 065
  10. AZTREONAM [Concomitant]
     Active Substance: AZTREONAM
     Indication: Pseudomonas infection

REACTIONS (2)
  - Drug ineffective [Unknown]
  - Pathogen resistance [Unknown]
